FAERS Safety Report 26183830 (Version 1)
Quarter: 2025Q4

REPORT INFORMATION
  Report Type: Report from Study
  Country: CA (occurrence: CA)
  Receive Date: 20251221
  Receipt Date: 20251221
  Transmission Date: 20260118
  Serious: Yes (Other)
  Sender: CELLTRION
  Company Number: CA-CELLTRION INC.-2025CA041971

PATIENT

DRUGS (6)
  1. INFLIXIMAB-DYYB [Suspect]
     Active Substance: INFLIXIMAB-DYYB
     Indication: Colitis ulcerative
     Dosage: MAINTENANCE - 500 MG - IV  (INTRAVENOUS) EVERY 8 WEEKS
     Route: 042
     Dates: start: 20250915
  2. OESTROGEL [ESTRADIOL] [Concomitant]
  3. PANTOPRAZOLE [Concomitant]
     Active Substance: PANTOPRAZOLE
  4. CODEINE [Concomitant]
     Active Substance: CODEINE
  5. WEGOVY [Concomitant]
     Active Substance: SEMAGLUTIDE
  6. STERILET T [Concomitant]

REACTIONS (3)
  - Ovarian cyst [Unknown]
  - Overdose [Unknown]
  - Therapy interrupted [Unknown]

NARRATIVE: CASE EVENT DATE: 20250101
